FAERS Safety Report 9516861 (Version 2)
Quarter: 2014Q1

REPORT INFORMATION
  Report Type: Spontaneous
  Country: US (occurrence: None)
  Receive Date: 20130305
  Receipt Date: 20140306
  Transmission Date: 20141002
  Serious: Yes (Other)
  Sender: FDA-Public Use
  Company Number: 163-21880-12120597

PATIENT
  Age: 72 Year
  Sex: Male

DRUGS (7)
  1. REVLIMID [Suspect]
     Indication: PLASMA CELL MYELOMA
     Route: 048
     Dates: start: 20100112
  2. OXYCODONE [Concomitant]
  3. ARANESP (DARBEPOETIN ALFA) [Concomitant]
  4. ALLOPURINOL [Concomitant]
  5. NOVOLOG (INSULIN ASPART) [Concomitant]
  6. VERAPAMIL [Concomitant]
  7. METOPROLOL SUCCINATE [Concomitant]

REACTIONS (2)
  - Full blood count abnormal [None]
  - Full blood count decreased [None]
